FAERS Safety Report 26102002 (Version 1)
Quarter: 2025Q4

REPORT INFORMATION
  Report Type: Spontaneous
  Country: GB (occurrence: GB)
  Receive Date: 20251128
  Receipt Date: 20251128
  Transmission Date: 20260118
  Serious: Yes (Death, Other)
  Sender: ASTELLAS
  Company Number: GB-GILEAD-2025-0738025

PATIENT
  Age: 68 Year
  Sex: Male

DRUGS (2)
  1. AMPHOTERICIN B [Suspect]
     Active Substance: AMPHOTERICIN B
     Indication: Respiratory tract infection fungal
     Dosage: UNK
     Route: 065
  2. AMPHOTERICIN B [Suspect]
     Active Substance: AMPHOTERICIN B
     Indication: Product used for unknown indication
     Dosage: UNK
     Route: 065

REACTIONS (3)
  - Wrong product administered [Fatal]
  - Cardiac arrest [Fatal]
  - Overdose [Fatal]

NARRATIVE: CASE EVENT DATE: 20250201
